FAERS Safety Report 14350814 (Version 1)
Quarter: 2018Q1

REPORT INFORMATION
  Report Type: Report from Study
  Country: US (occurrence: US)
  Receive Date: 20180104
  Receipt Date: 20180104
  Transmission Date: 20180509
  Serious: Yes (Other)
  Sender: FDA-Public Use
  Company Number: US-MYLANLABS-2017M1082022

PATIENT
  Age: 15 Year
  Sex: Female

DRUGS (1)
  1. METHOTREXATE. [Suspect]
     Active Substance: METHOTREXATE
     Indication: EWING^S SARCOMA
     Dosage: CUMULATIVE DOSE: 141000 MG/M2
     Route: 042

REACTIONS (2)
  - Cardiomyopathy [Unknown]
  - Headache [Unknown]
